FAERS Safety Report 18334668 (Version 1)
Quarter: 2020Q4

REPORT INFORMATION
  Report Type: Spontaneous
  Country: US (occurrence: US)
  Receive Date: 20201001
  Receipt Date: 20201001
  Transmission Date: 20210113
  Serious: No
  Sender: FDA-Public Use
  Company Number: None

PATIENT
  Age: 41 Year
  Sex: Female
  Weight: 69.75 kg

DRUGS (5)
  1. SODIUM OXYBATE. [Concomitant]
     Active Substance: SODIUM OXYBATE
  2. WOMEN^S DAILY VITAMIN [Concomitant]
  3. XYREM [Suspect]
     Active Substance: SODIUM OXYBATE
     Indication: NARCOLEPSY
     Dosage: ?          QUANTITY:1.75 G;OTHER FREQUENCY:TWICE NIGHTLY;?
     Route: 048
  4. VITAMIN D [Concomitant]
     Active Substance: VITAMIN D NOS
  5. LEVOTHYROXINE. [Concomitant]
     Active Substance: LEVOTHYROXINE

REACTIONS (5)
  - Drug ineffective [None]
  - Product administration error [None]
  - Initial insomnia [None]
  - Product quality issue [None]
  - Poor quality sleep [None]

NARRATIVE: CASE EVENT DATE: 20200925
